FAERS Safety Report 11122116 (Version 2)
Quarter: 2015Q3

REPORT INFORMATION
  Report Type: Spontaneous
  Country: GB (occurrence: GB)
  Receive Date: 20150519
  Receipt Date: 20150716
  Transmission Date: 20151125
  Serious: Yes (Other)
  Sender: FDA-Public Use
  Company Number: GB-PFIZER INC-2015166241

PATIENT
  Age: 54 Year
  Sex: Male

DRUGS (5)
  1. AVEED [Suspect]
     Active Substance: TESTOSTERONE UNDECANOATE
     Dosage: UNK
  2. FORTESTA [Suspect]
     Active Substance: TESTOSTERONE
  3. GENOTROPIN [Suspect]
     Active Substance: SOMATROPIN
     Indication: GROWTH HORMONE DEFICIENCY
     Dosage: UNK
  4. TESTIM [Suspect]
     Active Substance: TESTOSTERONE
  5. TESTOSTERONE. [Suspect]
     Active Substance: TESTOSTERONE

REACTIONS (1)
  - Prostate cancer [Not Recovered/Not Resolved]
